FAERS Safety Report 12581213 (Version 1)
Quarter: 2016Q3

REPORT INFORMATION
  Report Type: Report from Study
  Country: RO (occurrence: RO)
  Receive Date: 20160721
  Receipt Date: 20160721
  Transmission Date: 20161109
  Serious: Yes (Hospitalization)
  Sender: FDA-Public Use
  Company Number: RO-KADMON PHARMACEUTICALS, LLC-KAD201607-002629

PATIENT
  Age: 59 Year
  Sex: Male

DRUGS (7)
  1. EXVIERA [Suspect]
     Active Substance: DASABUVIR
     Indication: HEPATIC CIRRHOSIS
     Dosage: FILM-COATED TABLET
     Route: 048
     Dates: start: 20160704
  2. VIEKIRAX [Suspect]
     Active Substance: OMBITASVIR\PARITAPREVIR\RITONAVIR
     Indication: HEPATIC CIRRHOSIS
     Dosage: FILM-COATED TABLET
     Route: 048
     Dates: start: 20160704
  3. CAPTOPRIL. [Concomitant]
     Active Substance: CAPTOPRIL
     Indication: HYPERTENSION
     Dosage: TABLET
     Route: 048
  4. RIBAVIRIN. [Suspect]
     Active Substance: RIBAVIRIN
     Indication: HEPATITIS C
     Dosage: FILM-COATED TABLET
     Route: 048
     Dates: start: 20160607, end: 20160701
  5. RIBAVIRIN. [Suspect]
     Active Substance: RIBAVIRIN
     Indication: HEPATIC CIRRHOSIS
  6. EXVIERA [Suspect]
     Active Substance: DASABUVIR
     Indication: HEPATITIS C
     Dosage: FILM-COATED TABLET
     Route: 048
     Dates: start: 20160607, end: 20160701
  7. VIEKIRAX [Suspect]
     Active Substance: OMBITASVIR\PARITAPREVIR\RITONAVIR
     Indication: HEPATITIS C
     Dosage: FILM-COATED TABLET
     Route: 048
     Dates: start: 20160607, end: 20160701

REACTIONS (4)
  - Syncope [Recovered/Resolved]
  - Pharyngitis [Unknown]
  - Dizziness [Unknown]
  - Vomiting [Unknown]

NARRATIVE: CASE EVENT DATE: 20160607
